FAERS Safety Report 6169369-4 (Version None)
Quarter: 2009Q2

REPORT INFORMATION
  Report Type: 
  Country: None (occurrence: None)
  Receive Date: 20090424
  Receipt Date: 20090317
  Transmission Date: 20091009
  Serious: No
  Sender: FDA-Public Use
  Company Number: PYLE-2009-007

PATIENT
  Age: 42 Year
  Sex: Male
  Weight: 99.3377 kg

DRUGS (1)
  1. PYLERA [Suspect]
     Dosage: 3 CAPS; TID; PO
     Route: 048

REACTIONS (2)
  - OROPHARYNGEAL PLAQUE [None]
  - TONGUE DISCOLOURATION [None]
